FAERS Safety Report 25528152 (Version 1)
Quarter: 2025Q3

REPORT INFORMATION
  Report Type: Spontaneous
  Country: EU (occurrence: EU)
  Receive Date: 20250708
  Receipt Date: 20250708
  Transmission Date: 20251020
  Serious: Yes (Other)
  Sender: RANBAXY
  Company Number: EU-LRB-01048846

PATIENT
  Age: 22 Year
  Sex: Female
  Weight: 55 kg

DRUGS (3)
  1. OLANZAPINE [Suspect]
     Active Substance: OLANZAPINE
     Indication: Obsessive thoughts
     Route: 048
     Dates: start: 20250311, end: 20250314
  2. OLANZAPINE [Suspect]
     Active Substance: OLANZAPINE
     Indication: Decreased appetite
  3. FLUOXETINE [Concomitant]
     Active Substance: FLUOXETINE HYDROCHLORIDE
     Indication: Product used for unknown indication
     Route: 048

REACTIONS (1)
  - Epilepsy [Recovering/Resolving]
